FAERS Safety Report 15127133 (Version 1)
Quarter: 2018Q3

REPORT INFORMATION
  Report Type: Spontaneous
  Country: US (occurrence: US)
  Receive Date: 20180710
  Receipt Date: 20180710
  Transmission Date: 20181010
  Serious: Yes (Hospitalization)
  Sender: FDA-Public Use
  Company Number: US-TEVA-2018-US-921882

PATIENT
  Sex: Female

DRUGS (1)
  1. METOPROLOL SUCCINATE EXTENDED?RELEASE TABLETS [Suspect]
     Active Substance: METOPROLOL SUCCINATE
     Route: 065
     Dates: start: 2015

REACTIONS (4)
  - Palpitations [Unknown]
  - Drug ineffective [Unknown]
  - Heart rate increased [Unknown]
  - Heart rate irregular [Unknown]

NARRATIVE: CASE EVENT DATE: 2015
